FAERS Safety Report 5795449-9 (Version None)
Quarter: 2008Q2

REPORT INFORMATION
  Report Type: 
  Country: None (occurrence: None)
  Receive Date: 20080630
  Receipt Date: 20080618
  Transmission Date: 20081010
  Serious: Yes (Other)
  Sender: FDA-Public Use
  Company Number: US-PFIZER INC-2008051888

PATIENT
  Sex: Female

DRUGS (1)
  1. LYRICA [Suspect]
     Indication: PAIN

REACTIONS (7)
  - ABDOMINAL DISTENSION [None]
  - EYE SWELLING [None]
  - MALAISE [None]
  - MENTAL IMPAIRMENT [None]
  - SPEECH DISORDER [None]
  - SWELLING [None]
  - VISUAL FIELD DEFECT [None]
